FAERS Safety Report 8033658-9 (Version None)
Quarter: 2012Q1

REPORT INFORMATION
  Report Type: 
  Country: None (occurrence: None)
  Receive Date: 20120110
  Receipt Date: 20120103
  Transmission Date: 20120608
  Serious: Yes (Other)
  Sender: FDA-Public Use
  Company Number: GB-MILLENNIUM PHARMACEUTICALS, INC.-2012-00072

PATIENT

DRUGS (1)
  1. VELCADE [Suspect]
     Indication: MULTIPLE MYELOMA
     Dosage: UNK
     Dates: start: 20111017, end: 20111017

REACTIONS (5)
  - OEDEMA PERIPHERAL [None]
  - DIARRHOEA [None]
  - INSOMNIA [None]
  - HAEMATOMA [None]
  - NEUROPATHY PERIPHERAL [None]
